FAERS Safety Report 6928192-0 (Version None)
Quarter: 2010Q3

REPORT INFORMATION
  Report Type: 
  Country: None (occurrence: None)
  Receive Date: 20100817
  Receipt Date: 20100811
  Transmission Date: 20110219
  Serious: Yes (Death, Hospitalization)
  Sender: FDA-Public Use
  Company Number: FR-ROCHE-715348

PATIENT
  Sex: Female
  Weight: 54 kg

DRUGS (4)
  1. BEVACIZUMAB [Suspect]
     Indication: GLIOBLASTOMA
     Dosage: DATE OF LAST DOSE PRIOR TO SAE: 24 JUNE 2010, CUMULATIVE DOSE: 5940 MG
     Route: 042
     Dates: start: 20091230, end: 20100708
  2. IRINOTECAN HCL [Suspect]
     Indication: GLIOBLASTOMA
     Dosage: FLACON, DATE OF LAST DOSE PRIOR TO SAE: 24 JUNE 2010, CUMULATIVE DOSE: 1400 MG
     Route: 042
     Dates: start: 20091230, end: 20100708
  3. TEMOZOLOMIDE [Suspect]
     Indication: GLIOBLASTOMA
     Dosage: CUMULATIVE DOSE: 5040 MG
     Route: 048
     Dates: start: 20100315, end: 20100425
  4. MEDROL [Concomitant]
     Indication: PROPHYLAXIS
     Route: 048
     Dates: start: 20091101

REACTIONS (3)
  - CARDIAC ARREST [None]
  - CEREBRAL HAEMORRHAGE [None]
  - LUMBAR PUNCTURE [None]
